FAERS Safety Report 14499044 (Version 7)
Quarter: 2019Q3

REPORT INFORMATION
  Report Type: Spontaneous
  Country: US (occurrence: US)
  Receive Date: 20180207
  Receipt Date: 20190823
  Transmission Date: 20191004
  Serious: Yes (Death, Hospitalization, Other)
  Sender: FDA-Public Use
  Company Number: US-PFIZER INC-2018049564

PATIENT
  Age: 69 Year
  Sex: Female
  Weight: 64 kg

DRUGS (7)
  1. POTASSIUM CHLORIDE. [Concomitant]
     Active Substance: POTASSIUM CHLORIDE
     Indication: ELECTROLYTE SUBSTITUTION THERAPY
     Dosage: 10 MEQ, ALTERNATE DAY
  2. XALKORI [Suspect]
     Active Substance: CRIZOTINIB
     Dosage: UNK
  3. XALKORI [Suspect]
     Active Substance: CRIZOTINIB
     Dosage: 250 MG, 2X/DAY
     Route: 048
     Dates: start: 201612
  4. HYDROXYCHLOROQUINE SULFATE. [Concomitant]
     Active Substance: HYDROXYCHLOROQUINE SULFATE
     Indication: OSTEOARTHRITIS
     Dosage: 200 MG, 2X/DAY
     Route: 048
  5. LEVOTHYROXINE. [Concomitant]
     Active Substance: LEVOTHYROXINE
     Indication: THYROID DISORDER
     Dosage: 100 UG, 1X/DAY (ONCE A DAY IN THE AM)
     Dates: start: 2006
  6. XALKORI [Suspect]
     Active Substance: CRIZOTINIB
     Indication: LUNG NEOPLASM MALIGNANT
     Dosage: 250 MG, 2X/DAY (ONCE IN THE AM, ONCE IN THE PM)
     Route: 048
     Dates: start: 201611
  7. TRAMADOL. [Concomitant]
     Active Substance: TRAMADOL
     Indication: PAIN
     Dosage: 50 MG, 2X/DAY (ONCE IN THE AM, AND ONE AT NIGHT)
     Route: 048

REACTIONS (6)
  - Neoplasm progression [Fatal]
  - Product taste abnormal [Unknown]
  - Pneumothorax [Unknown]
  - Infection [Unknown]
  - Dyspnoea [Not Recovered/Not Resolved]
  - Taste disorder [Recovered/Resolved]

NARRATIVE: CASE EVENT DATE: 201612
